FAERS Safety Report 9243287 (Version 2)
Quarter: 2013Q2

REPORT INFORMATION
  Report Type: Spontaneous
  Country: CA (occurrence: CA)
  Receive Date: 20130419
  Receipt Date: 20130528
  Transmission Date: 20140414
  Serious: No
  Sender: FDA-Public Use
  Company Number: CA-BAXTER-2013BAX014054

PATIENT
  Age: 77 Year
  Sex: Female
  Weight: 67 kg

DRUGS (26)
  1. GAMMAGARD LIQUID -IMMUNE GLOBULIN INTRAVENOUS (HUMAN), [IGIV] 10% [Suspect]
     Indication: PLASMA CELL MYELOMA
     Route: 042
     Dates: start: 20130326, end: 20130326
  2. GAMMAGARD LIQUID -IMMUNE GLOBULIN INTRAVENOUS (HUMAN), [IGIV] 10% [Suspect]
     Indication: HYPOGAMMAGLOBULINAEMIA
  3. LASIX [Concomitant]
     Indication: FLUID OVERLOAD
     Route: 065
     Dates: start: 20130313
  4. LASIX [Concomitant]
     Route: 048
     Dates: start: 20130326
  5. DOMPERIDONE [Concomitant]
     Indication: PRODUCT USED FOR UNKNOWN INDICATION
     Route: 048
     Dates: start: 20130326
  6. DOMPERIDONE [Concomitant]
     Route: 048
     Dates: start: 20130326
  7. DOMPERIDONE [Concomitant]
     Route: 048
     Dates: start: 20130326
  8. SALMETEROL [Concomitant]
     Indication: PRODUCT USED FOR UNKNOWN INDICATION
     Dates: start: 20130326
  9. SALMETEROL [Concomitant]
     Dates: start: 20130326
  10. PRADAX [Concomitant]
     Indication: PRODUCT USED FOR UNKNOWN INDICATION
     Route: 048
     Dates: start: 20130326
  11. CARDIZEM [Concomitant]
     Indication: PRODUCT USED FOR UNKNOWN INDICATION
     Route: 048
     Dates: start: 20130326
  12. RAMIPRIL [Concomitant]
     Indication: PRODUCT USED FOR UNKNOWN INDICATION
     Route: 048
     Dates: start: 20130326
  13. PANTOLOC [Concomitant]
     Indication: PRODUCT USED FOR UNKNOWN INDICATION
     Route: 048
     Dates: start: 20130326
  14. FLUTICASONE [Concomitant]
     Indication: PRODUCT USED FOR UNKNOWN INDICATION
     Dates: start: 20130326
  15. FLUTICASONE [Concomitant]
     Dates: start: 20130326
  16. GLUCOPHAGE [Concomitant]
     Indication: PRODUCT USED FOR UNKNOWN INDICATION
     Route: 048
     Dates: start: 20130326
  17. GLUCOPHAGE [Concomitant]
     Route: 048
     Dates: start: 20130326
  18. GLUCOPHAGE [Concomitant]
     Route: 048
     Dates: start: 20130326
  19. FOLIC ACID [Concomitant]
     Indication: PRODUCT USED FOR UNKNOWN INDICATION
     Route: 048
     Dates: start: 20130326
  20. VITAMIN B12 [Concomitant]
     Indication: PRODUCT USED FOR UNKNOWN INDICATION
     Route: 048
     Dates: start: 20130326
  21. LEVOTHYROXINE [Concomitant]
     Indication: PRODUCT USED FOR UNKNOWN INDICATION
     Route: 048
     Dates: start: 20130326
  22. CALCIUM CARBONATE/VITAMIN D [Concomitant]
     Indication: PRODUCT USED FOR UNKNOWN INDICATION
     Dosage: 500/400
     Route: 048
     Dates: start: 20130326
  23. CALCIUM CARBONATE/VITAMIN D [Concomitant]
     Dosage: 500/400
     Route: 048
     Dates: start: 20130326
  24. REPAGLINIDE [Concomitant]
     Indication: PRODUCT USED FOR UNKNOWN INDICATION
     Route: 048
     Dates: start: 20130326
  25. REPAGLINIDE [Concomitant]
     Route: 048
     Dates: start: 20130326
  26. REPAGLINIDE [Concomitant]
     Route: 048
     Dates: start: 20130326

REACTIONS (10)
  - Hypertension [Recovered/Resolved]
  - Body temperature increased [Recovered/Resolved]
  - Chills [Recovered/Resolved]
  - Tremor [Recovered/Resolved]
  - Use of accessory respiratory muscles [Recovered/Resolved]
  - Wheezing [Recovered/Resolved]
  - Productive cough [Recovered/Resolved]
  - Oxygen saturation decreased [Recovered/Resolved]
  - Respiratory distress [Recovered/Resolved]
  - Drug intolerance [Unknown]
